FAERS Safety Report 10254891 (Version 1)
Quarter: 2014Q2

REPORT INFORMATION
  Report Type: Report from Study
  Country: AR (occurrence: AR)
  Receive Date: 20140624
  Receipt Date: 20140624
  Transmission Date: 20141212
  Serious: Yes (Other)
  Sender: FDA-Public Use
  Company Number: PHHY2014AR077457

PATIENT
  Sex: Female

DRUGS (2)
  1. DIOVAN [Suspect]
     Indication: HYPERTENSION
     Dosage: 80 MG, 1 AND A HALF OR 2
  2. DIOVAN [Suspect]
     Dosage: 1.5 OR 2 TABLETS, UKN
     Route: 048

REACTIONS (5)
  - Joint dislocation [Recovering/Resolving]
  - Head injury [Recovering/Resolving]
  - Fall [Unknown]
  - Musculoskeletal pain [Unknown]
  - Wrong technique in drug usage process [Unknown]
